FAERS Safety Report 4633938-0 (Version None)
Quarter: 2005Q2

REPORT INFORMATION
  Report Type: 
  Country: None (occurrence: None)
  Receive Date: 20050412
  Receipt Date: 20050412
  Transmission Date: 20051028
  Serious: Yes (Life-Threatening, Disabling)
  Sender: FDA-Public Use
  Company Number: None

PATIENT
  Age: 11 Year
  Sex: Female
  Weight: 41 kg

DRUGS (2)
  1. CYTARABINE [Suspect]
     Indication: ACUTE MYELOID LEUKAEMIA
     Dosage: ARA-C 1 G/M2/DOSE
     Dates: start: 20050310, end: 20050314
  2. ETOPOSIDE [Suspect]
     Indication: ACUTE MYELOID LEUKAEMIA
     Dosage: ETOP 150 MG/M2 /DOSES
     Dates: start: 20050310, end: 20050314

REACTIONS (5)
  - CHROMATOPSIA [None]
  - HALLUCINATION, VISUAL [None]
  - HYDROCEPHALUS [None]
  - NERVOUS SYSTEM DISORDER [None]
  - SOMNOLENCE [None]
